FAERS Safety Report 6116932-2 (Version None)
Quarter: 2009Q1

REPORT INFORMATION
  Report Type: 
  Country: None (occurrence: None)
  Receive Date: 20090314
  Receipt Date: 20090106
  Transmission Date: 20090719
  Serious: No
  Sender: FDA-Public Use
  Company Number: US-ABBOTT-09P-163-0495731-00

PATIENT
  Sex: Female
  Weight: 65.83 kg

DRUGS (5)
  1. HUMIRA [Suspect]
     Indication: RHEUMATOID ARTHRITIS
     Route: 058
     Dates: start: 20081001
  2. DIOVAN [Concomitant]
     Indication: HYPERTENSION
     Route: 048
  3. FOLIC ACID [Concomitant]
     Indication: ANAEMIA
     Route: 048
     Dates: start: 20071201
  4. LEXAPRO [Concomitant]
     Indication: DEPRESSION
     Route: 048
  5. ZYRTEC [Concomitant]
     Indication: SEASONAL ALLERGY
     Dosage: UNSURE OF STRENGTH
     Route: 048

REACTIONS (1)
  - INJECTION SITE PAIN [None]
